FAERS Safety Report 13354487 (Version 1)
Quarter: 2017Q1

REPORT INFORMATION
  Report Type: Report from Study
  Country: US (occurrence: US)
  Receive Date: 20170321
  Receipt Date: 20170321
  Transmission Date: 20170429
  Serious: No
  Sender: FDA-Public Use
  Company Number: PHEH2017US007957

PATIENT
  Sex: Female

DRUGS (1)
  1. RECLAST [Suspect]
     Active Substance: ZOLEDRONIC ACID
     Indication: PRODUCT USED FOR UNKNOWN INDICATION
     Dosage: 5 MG, UNK
     Route: 065
     Dates: start: 20170314

REACTIONS (11)
  - Pain in extremity [Unknown]
  - Crying [Unknown]
  - Insomnia [Unknown]
  - Arthralgia [Unknown]
  - Influenza like illness [Unknown]
  - Eye movement disorder [Unknown]
  - Chills [Unknown]
  - Pelvic pain [Unknown]
  - Muscle spasms [Unknown]
  - Feeling abnormal [Unknown]
  - Pain [Unknown]
